FAERS Safety Report 10048534 (Version 2)
Quarter: 2014Q3

REPORT INFORMATION
  Report Type: Spontaneous
  Country: IT (occurrence: IT)
  Receive Date: 20140331
  Receipt Date: 20140929
  Transmission Date: 20150326
  Serious: Yes (Disabling)
  Sender: FDA-Public Use
  Company Number: PHHY2014IT038386

PATIENT
  Age: 78 Year
  Sex: Female

DRUGS (5)
  1. TACHIPIRINA [Concomitant]
     Active Substance: ACETAMINOPHEN
     Dosage: 500 MG
  2. HERCEPTIN [Concomitant]
     Active Substance: TRASTUZUMAB
     Dosage: UNK UKN, UNK
     Dates: start: 20100623, end: 20140215
  3. ANASTROZOLE. [Concomitant]
     Active Substance: ANASTROZOLE
     Dosage: 1 MG
     Dates: start: 201006
  4. ZOMETA [Suspect]
     Active Substance: ZOLEDRONIC ACID
     Indication: BREAST CANCER
     Dosage: 1 U, CYCLIC
     Route: 042
     Dates: start: 20101201, end: 20130719
  5. SIDERAL [Concomitant]
     Dosage: UNK UKN, UNK

REACTIONS (3)
  - Trismus [Unknown]
  - Osteonecrosis of jaw [Unknown]
  - Pain in jaw [Unknown]

NARRATIVE: CASE EVENT DATE: 20110601
